FAERS Safety Report 18073781 (Version 1)
Quarter: 2020Q3

REPORT INFORMATION
  Report Type: Report from Study
  Country: US (occurrence: US)
  Receive Date: 20200727
  Receipt Date: 20200727
  Transmission Date: 20201103
  Serious: Yes (Other)
  Sender: FDA-Public Use
  Company Number: US-JNJFOC-20200725801

PATIENT
  Age: 30 Year
  Sex: Female

DRUGS (2)
  1. SPRAVATO [Suspect]
     Active Substance: ESKETAMINE
     Indication: DEPRESSION
     Dosage: 56 MG, 3 DOSES TOTAL
     Dates: start: 20191114, end: 20191205
  2. SPRAVATO [Suspect]
     Active Substance: ESKETAMINE
     Dosage: 84 MG, 7 DOSES TOTAL
     Dates: start: 20191212, end: 20200128

REACTIONS (1)
  - Substance abuse [Unknown]
